FAERS Safety Report 9108152 (Version 1)
Quarter: 2013Q1

REPORT INFORMATION
  Report Type: Spontaneous
  Country: US (occurrence: US)
  Receive Date: 20130221
  Receipt Date: 20130221
  Transmission Date: 20140127
  Serious: No
  Sender: FDA-Public Use
  Company Number: US-BAYER-2013-018238

PATIENT
  Age: 80 Year
  Sex: Male
  Weight: 68 kg

DRUGS (6)
  1. ZETIA [Concomitant]
  2. LOSARTAN [Concomitant]
  3. TAMSULOSIN [Concomitant]
  4. ALEVE CAPLET/TABLET,MIDOL EXTENDED RELIEF CAPLET [Suspect]
     Dosage: 2 DF, BID
     Route: 048
     Dates: start: 2012, end: 20130201
  5. BAYER ASPIRIN REGIMEN ADULT LOW STRENGTH [Concomitant]
  6. PLAVIX [Concomitant]

REACTIONS (2)
  - Urinary incontinence [Not Recovered/Not Resolved]
  - Overdose [None]
